FAERS Safety Report 23342509 (Version 3)
Quarter: 2024Q3

REPORT INFORMATION
  Report Type: Spontaneous
  Country: CA (occurrence: CA)
  Receive Date: 20231227
  Receipt Date: 20240829
  Transmission Date: 20241016
  Serious: Yes (Other)
  Sender: JOHNSON AND JOHNSON
  Company Number: CA-VIIV HEALTHCARE LIMITED-CA2023AMR060355

PATIENT
  Age: 62 Year
  Sex: Female

DRUGS (8)
  1. RILPIVIRINE [Suspect]
     Active Substance: RILPIVIRINE
     Indication: HIV infection
     Dosage: UNK UNK, Q2M, (600MG/3ML) CABOTEGRAVIR AND (900MG/3ML) RILPIVIRINE INJECTION
     Route: 030
     Dates: start: 20230203
  2. RILPIVIRINE [Suspect]
     Active Substance: RILPIVIRINE
     Dosage: UNK UNK, Q2M,(600MG/3ML) CABOTEGRAVIR INJECTION AND (900MG/3ML) RILPIVIRINE INJECTION
     Route: 030
  3. RILPIVIRINE [Suspect]
     Active Substance: RILPIVIRINE
     Dosage: UNK UNK, Q2M,(600MG/3ML) CABOTEGRAVIR INJECTION AND (900MG/3ML) RILPIVIRINE
     Route: 030
  4. RILPIVIRINE [Suspect]
     Active Substance: RILPIVIRINE
     Dosage: UNK UNK, Q2M CABOTEGRAVIR 600MG/3ML RILPIVIRINE 900MG/3ML
     Route: 030
  5. CABOTEGRAVIR [Suspect]
     Active Substance: CABOTEGRAVIR
     Indication: HIV infection
     Dosage: UNK UNK, Q2M, (600MG/3ML) CABOTEGRAVIR AND (900MG/3ML) RILPIVIRINE INJECTION
     Route: 030
     Dates: start: 20230203
  6. CABOTEGRAVIR [Suspect]
     Active Substance: CABOTEGRAVIR
     Dosage: UNK UNK, Q2M,(600MG/3ML) CABOTEGRAVIR INJECTION AND (900MG/3ML) RILPIVIRINE INJECTION
     Route: 030
  7. CABOTEGRAVIR [Suspect]
     Active Substance: CABOTEGRAVIR
     Dosage: UNK UNK, Q2M,(600MG/3ML) CABOTEGRAVIR INJECTION AND (900MG/3ML) RILPIVIRINE
     Route: 030
  8. CABOTEGRAVIR [Suspect]
     Active Substance: CABOTEGRAVIR
     Dosage: UNK UNK, Q2M CABOTEGRAVIR 600MG/3ML RILPIVIRINE 900MG/3ML
     Route: 030

REACTIONS (3)
  - Bladder cancer [Unknown]
  - Injection site pain [Recovering/Resolving]
  - Dry skin [Unknown]
